FAERS Safety Report 20591151 (Version 1)
Quarter: 2022Q1

REPORT INFORMATION
  Report Type: Spontaneous
  Country: US (occurrence: US)
  Receive Date: 20220314
  Receipt Date: 20220314
  Transmission Date: 20220423
  Serious: No
  Sender: FDA-Public Use
  Company Number: US-GALDERMA-US2021014436

PATIENT

DRUGS (1)
  1. TRI-LUMA [Suspect]
     Active Substance: FLUOCINOLONE ACETONIDE\HYDROQUINONE\TRETINOIN
     Indication: Ephelides
     Dosage: 1 DOSAGE FORM
     Route: 061

REACTIONS (3)
  - Product use in unapproved indication [Recovered/Resolved]
  - Therapeutic response unexpected [Recovered/Resolved]
  - Product use issue [Recovered/Resolved]
